FAERS Safety Report 4957945-3 (Version None)
Quarter: 2006Q1

REPORT INFORMATION
  Report Type: 
  Country: None (occurrence: None)
  Receive Date: 20060127
  Receipt Date: 20041207
  Transmission Date: 20060701
  Serious: Yes (Hospitalization, Other)
  Sender: FDA-Public Use
  Company Number: 04-12-1697

PATIENT
  Age: 38 Year
  Sex: Female

DRUGS (3)
  1. CLOZAPINE [Suspect]
     Indication: SCHIZOPHRENIA, PARANOID TYPE
     Dosage: 350-250 QD, ORAL
     Route: 048
     Dates: start: 20040901, end: 20041126
  2. TOPAMAX [Concomitant]
  3. CELEXA [Concomitant]

REACTIONS (4)
  - AGRANULOCYTOSIS [None]
  - HYPERGLYCAEMIA [None]
  - PYREXIA [None]
  - SEPSIS [None]
